FAERS Safety Report 6177167-0 (Version None)
Quarter: 2009Q2

REPORT INFORMATION
  Report Type: 
  Country: None (occurrence: None)
  Receive Date: 20090504
  Receipt Date: 20090430
  Transmission Date: 20091009
  Serious: Yes (Hospitalization)
  Sender: FDA-Public Use
  Company Number: IT-PFIZER INC-2009185605

PATIENT

DRUGS (10)
  1. ZYVOXID [Suspect]
     Dosage: UNK
     Route: 048
     Dates: start: 20081120, end: 20090130
  2. ZYVOXID [Suspect]
     Dosage: UNK
     Route: 042
     Dates: start: 20081115, end: 20081129
  3. LASIX [Concomitant]
  4. LANSOX [Concomitant]
  5. COAPROVEL [Concomitant]
     Route: 048
  6. SOLOSA [Concomitant]
  7. ALLOPURINOL [Concomitant]
  8. CUMADIN [Concomitant]
  9. CARTROL [Concomitant]
  10. TRAVATAN [Concomitant]

REACTIONS (1)
  - ANAEMIA [None]
